FAERS Safety Report 8057328-6 (Version None)
Quarter: 2012Q1

REPORT INFORMATION
  Report Type: 
  Country: None (occurrence: None)
  Receive Date: 20120119
  Receipt Date: 20120112
  Transmission Date: 20120608
  Serious: Yes (Death, Hospitalization, Other)
  Sender: FDA-Public Use
  Company Number: JP-PFIZER INC-2012013824

PATIENT
  Age: 83 Year
  Sex: Male

DRUGS (2)
  1. CELECOXIB [Suspect]
     Indication: BACK PAIN
     Dosage: 400 MG, UNK/D
     Route: 048
  2. CELECOXIB [Suspect]
     Dosage: 200 MG, UNK
     Route: 048

REACTIONS (2)
  - PNEUMONIA ASPIRATION [None]
  - ILEAL ULCER PERFORATION [None]
